FAERS Safety Report 6938394-5 (Version None)
Quarter: 2010Q3

REPORT INFORMATION
  Report Type: 
  Country: None (occurrence: None)
  Receive Date: 20100824
  Receipt Date: 20100819
  Transmission Date: 20110219
  Serious: Yes (Death)
  Sender: FDA-Public Use
  Company Number: DE-SANOFI-AVENTIS-2010SA049913

PATIENT
  Age: 67 Year
  Weight: 75 kg

DRUGS (3)
  1. CLOPIDOGREL BISULFATE [Suspect]
     Indication: ACUTE CORONARY SYNDROME
     Route: 048
     Dates: start: 20100527, end: 20100527
  2. CLOPIDOGREL BISULFATE [Suspect]
     Route: 048
     Dates: start: 20100528
  3. ASPIRIN [Concomitant]

REACTIONS (2)
  - CARDIOGENIC SHOCK [None]
  - OVERDOSE [None]
